FAERS Safety Report 7415559-X (Version None)
Quarter: 2011Q2

REPORT INFORMATION
  Report Type: 
  Country: None (occurrence: None)
  Receive Date: 20110414
  Receipt Date: 20110405
  Transmission Date: 20111010
  Serious: Yes (Other)
  Sender: FDA-Public Use
  Company Number: US-JNJFOC-20110201894

PATIENT
  Sex: Female
  Weight: 68.04 kg

DRUGS (5)
  1. DURAGESIC [Suspect]
     Indication: FIBROMYALGIA
     Route: 062
  2. DURAGESIC [Suspect]
     Dosage: NDC#50458-0093-05
     Route: 062
  3. FENTANYL-100 [Suspect]
     Indication: ILL-DEFINED DISORDER
     Route: 062
  4. DURAGESIC [Suspect]
     Route: 062
  5. FENTANYL-100 [Suspect]
     Indication: FIBROMYALGIA
     Route: 062

REACTIONS (6)
  - ADVERSE EVENT [None]
  - HEPATIC CIRRHOSIS [None]
  - DRUG INEFFECTIVE [None]
  - THYROID DISORDER [None]
  - VEIN DISORDER [None]
  - DEPRESSION [None]
